FAERS Safety Report 4278177-0 (Version None)
Quarter: 2004Q1

REPORT INFORMATION
  Report Type: 
  Country: None (occurrence: None)
  Receive Date: 20040121
  Receipt Date: 20040108
  Transmission Date: 20041129
  Serious: Yes (Hospitalization)
  Sender: FDA-Public Use
  Company Number: 04P-151-0246912-00

PATIENT
  Age: 65 Year
  Sex: Male
  Weight: 80 kg

DRUGS (9)
  1. ISOPTIN [Suspect]
     Indication: CORONARY ARTERY OCCLUSION
     Dosage: 200 MG, 2 IN 1 D, INTRAVENOUS
     Route: 042
     Dates: start: 20031211, end: 20031211
  2. ABCIXIMAB [Suspect]
     Indication: CORONARY ARTERY OCCLUSION
     Dosage: BOLUS OF 22.5 MG THEN 2 HR INFUSION, INTRAVENOUS
     Route: 040
     Dates: start: 20031211, end: 20031211
  3. ASPIRIN [Suspect]
     Indication: ANGINA PECTORIS
     Dosage: 2 GM, 1 IN 1 D, PER ORAL
     Route: 048
     Dates: start: 20031211, end: 20031211
  4. HEPARIN-FRACTION, SODIUM SALT [Concomitant]
  5. HEPARIN SODIUM [Concomitant]
  6. NITROGLYCERIN [Concomitant]
  7. DOBUTAMINE HCL [Concomitant]
  8. HYZAAR [Concomitant]
  9. GLICLAZIDE [Concomitant]

REACTIONS (2)
  - RECTAL HAEMORRHAGE [None]
  - THROMBOCYTOPENIA [None]
